FAERS Safety Report 21712565 (Version 3)
Quarter: 2022Q4

REPORT INFORMATION
  Report Type: Report from Study
  Country: CA (occurrence: CA)
  Receive Date: 20221212
  Receipt Date: 20221221
  Transmission Date: 20230113
  Serious: Yes (Hospitalization, Other)
  Sender: FDA-Public Use
  Company Number: CA-JNJFOC-20211146611

PATIENT
  Age: 52 Year
  Sex: Female
  Weight: 123.3 kg

DRUGS (3)
  1. REMICADE [Suspect]
     Active Substance: INFLIXIMAB
     Indication: Colitis ulcerative
     Route: 042
     Dates: start: 20150413
  2. REMICADE [Suspect]
     Active Substance: INFLIXIMAB
     Route: 042
  3. HYDROCORTISONE [Concomitant]
     Active Substance: HYDROCORTISONE
     Indication: Premedication
     Route: 042

REACTIONS (10)
  - Colitis ulcerative [Unknown]
  - Tonsillitis [Unknown]
  - Purulent discharge [Not Recovered/Not Resolved]
  - Influenza [Unknown]
  - Musculoskeletal stiffness [Unknown]
  - Skin lesion [Not Recovered/Not Resolved]
  - Scar [Unknown]
  - Inflammatory marker increased [Unknown]
  - Pain in extremity [Unknown]
  - Arthralgia [Not Recovered/Not Resolved]

NARRATIVE: CASE EVENT DATE: 20220101
